FAERS Safety Report 14600973 (Version 2)
Quarter: 2018Q2

REPORT INFORMATION
  Report Type: Not Available
  Country: US (occurrence: US)
  Receive Date: 20180305
  Receipt Date: 20180419
  Transmission Date: 20180711
  Serious: No
  Sender: FDA-Public Use
  Company Number: US-NEUROCRINE BIOSCIENCES INC.-2018NBI00249

PATIENT
  Age: 67 Year
  Sex: Female

DRUGS (18)
  1. TRIHEXYPHENIDYL [Concomitant]
     Active Substance: TRIHEXYPHENIDYL
  2. LEVETIRACETAM. [Concomitant]
     Active Substance: LEVETIRACETAM
  3. LEVOTHYROXINE. [Concomitant]
     Active Substance: LEVOTHYROXINE
  4. ZANAFLEX [Concomitant]
     Active Substance: TIZANIDINE HYDROCHLORIDE
  5. FLONASE [Concomitant]
     Active Substance: FLUTICASONE PROPIONATE
  6. PRILOSEC [Concomitant]
     Active Substance: OMEPRAZOLE MAGNESIUM
  7. TRIAMTERENE. [Concomitant]
     Active Substance: TRIAMTERENE
  8. ASPIRIN. [Concomitant]
     Active Substance: ASPIRIN
  9. LUMIGAN [Concomitant]
     Active Substance: BIMATOPROST
  10. TRIAMCINOLONE [Concomitant]
     Active Substance: TRIAMCINOLONE
  11. ESTRADIOL. [Concomitant]
     Active Substance: ESTRADIOL
  12. CYMBALTA [Concomitant]
     Active Substance: DULOXETINE HYDROCHLORIDE
  13. FENTANYL. [Concomitant]
     Active Substance: FENTANYL
  14. INGREZZA [Suspect]
     Active Substance: VALBENAZINE
     Indication: TARDIVE DYSKINESIA
     Route: 048
     Dates: start: 20171230
  15. ONDANSETRON [Concomitant]
     Active Substance: ONDANSETRON
  16. LAMICTAL [Concomitant]
     Active Substance: LAMOTRIGINE
  17. MIRALAX [Concomitant]
     Active Substance: POLYETHYLENE GLYCOL 3350
  18. TOPROL XL [Concomitant]
     Active Substance: METOPROLOL SUCCINATE

REACTIONS (3)
  - Hyperhidrosis [Unknown]
  - Back pain [Unknown]
  - Feeling cold [Unknown]

NARRATIVE: CASE EVENT DATE: 201801
